FAERS Safety Report 8863622 (Version 1)
Quarter: 2012Q4

REPORT INFORMATION
  Report Type: 
  Country: US (occurrence: US)
  Receive Date: 20121024
  Receipt Date: 20121024
  Transmission Date: 20130627
  Serious: No
  Sender: FDA-Public Use
  Company Number: US-AMGEN-USASP2011063212

PATIENT
  Age: 64 Year
  Sex: Female

DRUGS (13)
  1. ENBREL [Suspect]
     Indication: PSORIATIC ARTHROPATHY
     Dosage: UNK
     Dates: start: 20111121
  2. CYMBALTA [Concomitant]
     Dosage: UNK
  3. PLAQUENIL [Concomitant]
     Dosage: UNK
  4. ARTHROTEC [Concomitant]
     Dosage: UNK
  5. GABAPENTIN [Concomitant]
     Dosage: UNK
  6. TOPROL [Concomitant]
     Dosage: UNK mg, UNK
  7. ESTRADIOL [Concomitant]
     Dosage: UNK
  8. OMEPRAZOLE [Concomitant]
     Dosage: UNK
  9. ARMOUR THYROID [Concomitant]
     Dosage: UNK
  10. FASTIN [Concomitant]
     Dosage: UNK
  11. LORTAB [Concomitant]
     Dosage: UNK
  12. METAXALONE [Concomitant]
     Dosage: UNK
  13. VITAMIN D [Concomitant]
     Dosage: UNK

REACTIONS (1)
  - Pelvic discomfort [Recovered/Resolved]
